FAERS Safety Report 7384045-8 (Version None)
Quarter: 2011Q1

REPORT INFORMATION
  Report Type: 
  Country: None (occurrence: None)
  Receive Date: 20110330
  Receipt Date: 20110317
  Transmission Date: 20110831
  Serious: Yes (Hospitalization, Other)
  Sender: FDA-Public Use
  Company Number: PHHY2011GB22117

PATIENT
  Age: 80 Year
  Sex: Female

DRUGS (6)
  1. DIGOXIN [Concomitant]
     Dosage: 125 UG, QD
  2. WARFARIN [Suspect]
     Indication: ACUTE MYOCARDIAL INFARCTION
     Dosage: 3 MG, Q48H
  3. NIFEDIPINE [Concomitant]
     Dosage: 40 MG, QD
  4. CANDESARTAN [Concomitant]
     Indication: BLOOD PRESSURE MANAGEMENT
     Dosage: 4 MG, QD
  5. SOTALOL [Concomitant]
     Dosage: 40 MG, BID
  6. THYROXINE [Concomitant]
     Dosage: 50 UG, QD

REACTIONS (14)
  - AORTIC ANEURYSM [None]
  - CHEST PAIN [None]
  - LEFT VENTRICULAR DYSFUNCTION [None]
  - VENTRICULAR HYPOKINESIA [None]
  - BACK PAIN [None]
  - DECREASED APPETITE [None]
  - MALAISE [None]
  - DYSPNOEA [None]
  - AORTIC THROMBOSIS [None]
  - ABDOMINAL MASS [None]
  - WEIGHT DECREASED [None]
  - AORTIC DISSECTION [None]
  - MUSCULOSKELETAL CHEST PAIN [None]
  - INTERNATIONAL NORMALISED RATIO INCREASED [None]
